FAERS Safety Report 6999034-2 (Version None)
Quarter: 2010Q3

REPORT INFORMATION
  Report Type: 
  Country: None (occurrence: None)
  Receive Date: 20100920
  Receipt Date: 20100907
  Transmission Date: 20110219
  Serious: Yes (Hospitalization)
  Sender: FDA-Public Use
  Company Number: US-ELI_LILLY_AND_COMPANY-US201009002784

PATIENT
  Age: 76 Year
  Sex: Female
  Weight: 60.317 kg

DRUGS (5)
  1. FORTEO [Suspect]
  2. COREG [Concomitant]
  3. NORVASC [Concomitant]
  4. SPIRIVA [Concomitant]
  5. ARIMIDEX [Concomitant]
     Indication: BREAST CANCER
     Dosage: 1 MG, DAILY (1/D)
     Dates: start: 20051213, end: 20100816

REACTIONS (3)
  - CARDIAC FAILURE CONGESTIVE [None]
  - LEFT VENTRICULAR DYSFUNCTION [None]
  - MYOCARDIAL ISCHAEMIA [None]
